FAERS Safety Report 8781768 (Version 1)
Quarter: 2012Q4

REPORT INFORMATION
  Report Type: 
  Country: US (occurrence: US)
  Receive Date: 20120913
  Receipt Date: 20120913
  Transmission Date: 20130627
  Serious: No
  Sender: FDA-Public Use
  Company Number: US-PFIZER INC-2012221463

PATIENT
  Age: 55 Year
  Sex: Female
  Weight: 63.04 kg

DRUGS (2)
  1. ESTRING [Suspect]
     Indication: HORMONE LEVEL ABNORMAL
     Dosage: 2 mg, every 3 months
     Route: 067
     Dates: start: 2012, end: 20120903
  2. XANAX [Concomitant]
     Indication: NERVOUS SYSTEM DISORDER
     Dosage: 0.5 mg, 2x/day

REACTIONS (4)
  - Product quality issue [Unknown]
  - Vulvovaginal burning sensation [Recovered/Resolved]
  - Vulvovaginal pruritus [Recovered/Resolved]
  - Vulvovaginal discomfort [Recovered/Resolved]
